FAERS Safety Report 22751995 (Version 4)
Quarter: 2023Q4

REPORT INFORMATION
  Report Type: Spontaneous
  Country: US (occurrence: US)
  Receive Date: 20230726
  Receipt Date: 20231121
  Transmission Date: 20240109
  Serious: Yes (Death, Life-Threatening)
  Sender: FDA-Public Use
  Company Number: US-AZURITY PHARMACEUTICALS, INC.-US-2023ARB004470

PATIENT
  Age: 0 Year
  Sex: Female
  Weight: 4.308 kg

DRUGS (6)
  1. TOPIRAMATE [Suspect]
     Active Substance: TOPIRAMATE
     Indication: Epilepsy
     Dosage: 0.5 ML, BID
     Route: 048
     Dates: start: 20230419
  2. TOPIRAMATE [Suspect]
     Active Substance: TOPIRAMATE
     Dosage: 1 ML, BID
     Route: 048
     Dates: start: 20230613
  3. DIAZEPAM [Concomitant]
     Active Substance: DIAZEPAM
     Indication: Product used for unknown indication
     Dosage: ONCE A DAY
     Route: 065
     Dates: end: 20230703
  4. LACOSAMIDE [Concomitant]
     Active Substance: LACOSAMIDE
     Indication: Product used for unknown indication
     Dosage: ONCE A DAY
     Route: 065
     Dates: end: 20230703
  5. PHENOBARBITAL SODIUM [Concomitant]
     Active Substance: PHENOBARBITAL SODIUM
     Indication: Product used for unknown indication
     Dosage: UNK
     Route: 065
     Dates: end: 20230703
  6. PHENYTOIN [Concomitant]
     Active Substance: PHENYTOIN
     Indication: Product used for unknown indication
     Dosage: ONCE A DAY
     Route: 065
     Dates: start: 202306, end: 20230703

REACTIONS (2)
  - Gene mutation [Fatal]
  - Product use issue [Unknown]

NARRATIVE: CASE EVENT DATE: 20230419
